FAERS Safety Report 8339841-7 (Version None)
Quarter: 2012Q2

REPORT INFORMATION
  Report Type: 
  Country: None (occurrence: None)
  Receive Date: 20120507
  Receipt Date: 20120425
  Transmission Date: 20120825
  Serious: Yes (Hospitalization)
  Sender: FDA-Public Use
  Company Number: GB-PFIZER INC-2012091204

PATIENT
  Age: 57 Year
  Sex: Female
  Weight: 69.1 kg

DRUGS (8)
  1. OXYCONTIN [Concomitant]
     Indication: PAIN
     Dosage: 5 MG, 2X/DAY
     Route: 048
     Dates: start: 20120207
  2. SENNA [Concomitant]
     Indication: LAXATIVE SUPPORTIVE CARE
     Dosage: 2 DF, AS NEEDED
     Route: 048
     Dates: start: 20120209
  3. CRIZOTINIB [Suspect]
     Indication: NON-SMALL CELL LUNG CANCER
     Dosage: 250 MG, 2X/DAY
     Route: 048
     Dates: start: 20120309, end: 20120419
  4. PARACETAMOL [Concomitant]
     Indication: PAIN
     Dosage: 1 G, 4X/DAY
     Route: 048
     Dates: start: 20120208
  5. DEXAMETHASONE [Concomitant]
     Dosage: 4 MG, 1X/DAY
     Route: 048
     Dates: start: 20120209
  6. METOCLOPRAMIDE [Concomitant]
     Indication: NAUSEA
     Dosage: 20 MG, AS NEEDED
     Route: 048
     Dates: start: 20111007
  7. CODEINE LINCTUS [Concomitant]
     Dosage: 15 MG, AS NEEDED
     Route: 048
     Dates: start: 20120208
  8. METOCLOPRAMIDE [Concomitant]
     Indication: VOMITING

REACTIONS (1)
  - PNEUMONITIS [None]
